FAERS Safety Report 6628879-3 (Version None)
Quarter: 2010Q1

REPORT INFORMATION
  Report Type: 
  Country: None (occurrence: None)
  Receive Date: 20100311
  Receipt Date: 20100224
  Transmission Date: 20100710
  Serious: Yes (Other)
  Sender: FDA-Public Use
  Company Number: GXKR2010DE02280

PATIENT
  Age: 23 Year
  Sex: Female

DRUGS (5)
  1. BUPROPION (NGX) [Suspect]
     Indication: ASTHENIA
     Dosage: 150 MG, QD
  2. BUPROPION (NGX) [Suspect]
     Indication: APATHY
     Dosage: 150 MG, BID
     Dates: start: 20070101
  3. BUPROPION (NGX) [Suspect]
     Dosage: 8 TABLETS OF 150 MG (CRUSHED)
  4. COCAINE (NGX) [Suspect]
     Dosage: UNK
     Dates: start: 20080501
  5. COCAINE (NGX) [Suspect]
     Dosage: UNK
     Dates: start: 20080101

REACTIONS (5)
  - AFFECT LABILITY [None]
  - AUTONOMIC NERVOUS SYSTEM IMBALANCE [None]
  - DRUG ABUSE [None]
  - RHINALGIA [None]
  - TACHYCARDIA [None]
